FAERS Safety Report 20881675 (Version 1)
Quarter: 2022Q2

REPORT INFORMATION
  Report Type: Spontaneous
  Country: US (occurrence: US)
  Receive Date: 20220527
  Receipt Date: 20220527
  Transmission Date: 20220721
  Serious: Yes (Other)
  Sender: FDA-Public Use
  Company Number: US-BRISTOL-MYERS SQUIBB COMPANY-2022-042515

PATIENT
  Age: 74 Year
  Sex: Male
  Weight: 84.82 kg

DRUGS (47)
  1. REVLIMID [Suspect]
     Active Substance: LENALIDOMIDE
     Indication: Plasma cell myeloma
     Route: 048
     Dates: start: 20210315
  2. ELIQUIS [Suspect]
     Active Substance: APIXABAN
     Indication: Product used for unknown indication
     Route: 065
  3. ACYCLOVIR [Concomitant]
     Active Substance: ACYCLOVIR
  4. AMOXICILLIN [Concomitant]
     Active Substance: AMOXICILLIN
  5. BREO ELLIPTA [Concomitant]
     Active Substance: FLUTICASONE FUROATE\VILANTEROL TRIFENATATE
     Dosage: 100-25 MCG INHALE 1 PUFF DAILY
  6. CALCIUM [Concomitant]
     Active Substance: CALCIUM
     Dosage: 600-400 MG I TAB EVERY DAY
  7. CLINDAMYCIN [Concomitant]
     Active Substance: CLINDAMYCIN
  8. MODERNA COVID-19 VACCINE [Concomitant]
     Active Substance: ELASOMERAN
     Dosage: 0.5 ML IN MUSCLE AS DIRECTED
  9. CYCLOBENZAPRINE [Concomitant]
     Active Substance: CYCLOBENZAPRINE
  10. CYCLOBENZAPRINE [Concomitant]
     Active Substance: CYCLOBENZAPRINE
  11. DEXAMETHASONE [Concomitant]
     Active Substance: DEXAMETHASONE
     Dosage: 4MG TABLET
     Dates: start: 20210308
  12. DICLOFENAC [Concomitant]
     Active Substance: DICLOFENAC
     Dosage: 1% GEL TWICE DAILY 1-2 G ON BACK
  13. FLUOCINOLONE [Concomitant]
     Active Substance: FLUOCINOLONE
     Dosage: EAR DROPS-4-5 DROPS TWICE DAILY  IN BOTH EARS
  14. FLUCONAZOLE [Concomitant]
     Active Substance: FLUCONAZOLE
     Dosage: 0.7 ML AS DIRECTED
  15. LIDOCAINE [Concomitant]
     Active Substance: LIDOCAINE
     Dosage: 5% PATCH EVERY 12 HR
  16. LINZESS [Concomitant]
     Active Substance: LINACLOTIDE
  17. METHYLPREDNISOLONE [Concomitant]
     Active Substance: METHYLPREDNISOLONE
     Dosage: 4 MG
  18. NYSTATIN [Concomitant]
     Active Substance: NYSTATIN
     Dosage: 1000 UNITS/ML SHAKELIQUID AND TAKE 5 ML BY MOUTH
  19. OXYCODONE [Concomitant]
     Active Substance: OXYCODONE
     Indication: Pain
  20. PROCHLORPERAZINE [Concomitant]
     Active Substance: PROCHLORPERAZINE
     Indication: Nausea
     Dosage: 10 MG TAB
  21. SULFAMETHOXAZOLE\TRIMETHOPRIM [Concomitant]
     Active Substance: SULFAMETHOXAZOLE\TRIMETHOPRIM
     Dosage: 160/800 TAB
  22. TUDORZA PRESSAIR [Concomitant]
     Active Substance: ACLIDINIUM BROMIDE
     Dosage: 400 MCG ORAL INH
  23. ZOLPIDEM [Concomitant]
     Active Substance: ZOLPIDEM TARTRATE
     Dosage: 10 MG TAB
  24. ALIGN [Concomitant]
     Active Substance: BIFIDOBACTERIUM LONGUM SUBSP. INFANTIS
     Dosage: 4 MG CAPS
  25. AMBIEN [Concomitant]
     Active Substance: ZOLPIDEM TARTRATE
     Dosage: 10 MG TAB
  26. ATORVASTATIN [Concomitant]
     Active Substance: ATORVASTATIN
     Dosage: 10 MG TAB
  27. BACTRIM [Concomitant]
     Active Substance: SULFAMETHOXAZOLE\TRIMETHOPRIM
     Dosage: 800-160 MG TABLETS
  28. COENZYME Q10 [Concomitant]
     Active Substance: DIETARY SUPPLEMENT\UBIDECARENONE
     Dosage: 100 MG TR CAPS
  29. BORTEZOMIB [Concomitant]
     Active Substance: BORTEZOMIB
     Dosage: 3.5 MG INJ 1 VIAL
  30. DOCUSATE SODIUM [Concomitant]
     Active Substance: DOCUSATE SODIUM
     Dosage: 100 MG CAPS
  31. DYMISTA [Concomitant]
     Active Substance: AZELASTINE HYDROCHLORIDE\FLUTICASONE PROPIONATE
     Dosage: 137/50 MCG NASAL SPR
  32. FISH OIL [Concomitant]
     Active Substance: FISH OIL
     Dosage: 1000 MG CAPSULE
  33. IPRATROPIUM [Concomitant]
     Active Substance: IPRATROPIUM
     Dosage: 0.03% NAS SP 30 ML
  34. LORATADINE [Concomitant]
     Active Substance: LORATADINE
     Dosage: 10 MG TABLET
  35. MAGNESIUM CITRATE [Concomitant]
     Active Substance: MAGNESIUM CITRATE
  36. FOLIC ACID [Concomitant]
     Active Substance: FOLIC ACID
     Dosage: 1 MG TAB
  37. SELENIUM [Concomitant]
     Active Substance: SELENIUM
     Dosage: 100 MCG TABLET
  38. PREDNISONE [Concomitant]
     Active Substance: PREDNISONE
     Dosage: 10 MG TABLET
  39. METAMUCIL [Concomitant]
     Active Substance: PLANTAGO SEED
     Dosage: 30.9 % POWDER
  40. MUCINEX [Concomitant]
     Active Substance: GUAIFENESIN
     Dosage: 1200 MG MAX STRENGTH 14^S
  41. SOTALOL [Concomitant]
     Active Substance: SOTALOL
     Dosage: 120 MG TABLET
  42. TAMSULOSIN [Concomitant]
     Active Substance: TAMSULOSIN
     Dosage: 0.4 MG CAPSULE
  43. VITAMIN E [Concomitant]
     Active Substance: .ALPHA.-TOCOPHEROL
     Dosage: 1000 IU
  44. VITAMIN B12 [Concomitant]
     Active Substance: CYANOCOBALAMIN
     Dosage: 2000 MCG TABLET
  45. VITAMIN B6 [Concomitant]
     Active Substance: PYRIDOXINE HYDROCHLORIDE
     Dosage: 100 MG TABLET
  46. VITAMIN D3 [Concomitant]
     Active Substance: CHOLECALCIFEROL
     Dosage: 1000 UNIT
  47. ZOMETA [Concomitant]
     Active Substance: ZOLEDRONIC ACID

REACTIONS (1)
  - Thrombocytopenia [Unknown]

NARRATIVE: CASE EVENT DATE: 20220401
